FAERS Safety Report 4400928-2 (Version None)
Quarter: 2004Q3

REPORT INFORMATION
  Report Type: 
  Country: None (occurrence: None)
  Receive Date: 20040907
  Receipt Date: 20030813
  Transmission Date: 20050211
  Serious: No
  Sender: FDA-Public Use
  Company Number: US-BRISTOL-MYERS SQUIBB COMPANY-12355400

PATIENT
  Age: 73 Year
  Sex: Male
  Weight: 84 kg

DRUGS (2)
  1. COUMADIN [Suspect]
     Indication: ATRIAL FIBRILLATION
     Dosage: DOSE VALUE:  7.5 MG FOR 6 DAYS, ALTERNATING WITH 10 MG FOR THE 7TH DAY.
     Route: 048
     Dates: start: 20030623
  2. ATENOLOL [Concomitant]

REACTIONS (1)
  - GLOSSODYNIA [None]
